FAERS Safety Report 13135106 (Version 2)
Quarter: 2019Q2

REPORT INFORMATION
  Report Type: Spontaneous
  Country: IT (occurrence: IT)
  Receive Date: 20170120
  Receipt Date: 20190404
  Transmission Date: 20190711
  Serious: Yes (Other)
  Sender: FDA-Public Use
  Company Number: IT-JNJFOC-20170117886

PATIENT

DRUGS (28)
  1. RISPERIDONE. [Suspect]
     Active Substance: RISPERIDONE
     Indication: AUTISM SPECTRUM DISORDER
     Dosage: 0.23 TO 4.5 MG DAILY.
     Route: 048
  2. CLOTHIAPINE [Suspect]
     Active Substance: CLOTHIAPINE
     Indication: PRODUCT USED FOR UNKNOWN INDICATION
     Route: 065
  3. DELORAZEPAM [Suspect]
     Active Substance: DELORAZEPAM
     Indication: PRODUCT USED FOR UNKNOWN INDICATION
     Route: 065
  4. BIPERIDEN [Suspect]
     Active Substance: BIPERIDEN
     Indication: PRODUCT USED FOR UNKNOWN INDICATION
     Route: 065
  5. RISPERIDONE. [Suspect]
     Active Substance: RISPERIDONE
     Indication: BEHAVIOUR DISORDER
     Dosage: 0.23 TO 4.5 MG DAILY.
     Route: 048
  6. TOPIRAMATE. [Suspect]
     Active Substance: TOPIRAMATE
     Indication: PRODUCT USED FOR UNKNOWN INDICATION
     Route: 065
  7. MELATONIN [Suspect]
     Active Substance: MELATONIN
     Indication: PRODUCT USED FOR UNKNOWN INDICATION
     Route: 065
  8. LITHIUM CARBONATE. [Suspect]
     Active Substance: LITHIUM CARBONATE
     Indication: PRODUCT USED FOR UNKNOWN INDICATION
     Route: 065
  9. VALPROATE [Suspect]
     Active Substance: VALPROIC ACID
     Indication: PRODUCT USED FOR UNKNOWN INDICATION
     Route: 065
  10. RISPERIDONE. [Suspect]
     Active Substance: RISPERIDONE
     Indication: BIPOLAR DISORDER
     Dosage: 0.23 TO 4.5 MG DAILY.
     Route: 048
  11. RISPERIDONE. [Suspect]
     Active Substance: RISPERIDONE
     Indication: OBSESSIVE-COMPULSIVE DISORDER
     Dosage: 0.23 TO 4.5 MG DAILY.
     Route: 048
  12. RISPERIDONE. [Suspect]
     Active Substance: RISPERIDONE
     Indication: PSYCHOTIC DISORDER
     Dosage: 0.23 TO 4.5 MG DAILY.
     Route: 048
  13. HALOPERIDOL. [Suspect]
     Active Substance: HALOPERIDOL
     Indication: PRODUCT USED FOR UNKNOWN INDICATION
     Route: 065
  14. SERTRALINE [Suspect]
     Active Substance: SERTRALINE HYDROCHLORIDE
     Indication: PRODUCT USED FOR UNKNOWN INDICATION
     Route: 065
  15. DIAZEPAM. [Suspect]
     Active Substance: DIAZEPAM
     Indication: PRODUCT USED FOR UNKNOWN INDICATION
     Route: 065
  16. OXCARBAZEPINE. [Suspect]
     Active Substance: OXCARBAZEPINE
     Indication: PRODUCT USED FOR UNKNOWN INDICATION
     Route: 065
  17. RISPERIDONE. [Suspect]
     Active Substance: RISPERIDONE
     Indication: ATTENTION DEFICIT/HYPERACTIVITY DISORDER
     Dosage: 0.23 TO 4.5 MG DAILY.
     Route: 048
  18. RISPERIDONE. [Suspect]
     Active Substance: RISPERIDONE
     Indication: INTELLECTUAL DISABILITY
     Dosage: 0.23 TO 4.5 MG DAILY.
     Route: 048
  19. RISPERIDONE. [Suspect]
     Active Substance: RISPERIDONE
     Indication: OPPOSITIONAL DEFIANT DISORDER
     Dosage: 0.23 TO 4.5 MG DAILY.
     Route: 048
  20. RISPERIDONE. [Suspect]
     Active Substance: RISPERIDONE
     Indication: TIC
     Dosage: 0.23 TO 4.5 MG DAILY.
     Route: 048
  21. RISPERIDONE. [Suspect]
     Active Substance: RISPERIDONE
     Indication: EATING DISORDER
     Dosage: 0.23 TO 4.5 MG DAILY.
     Route: 048
  22. RISPERIDONE. [Suspect]
     Active Substance: RISPERIDONE
     Indication: TOURETTE^S DISORDER
     Dosage: 0.23 TO 4.5 MG DAILY.
     Route: 048
  23. METHYLPHENIDATE HYDROCHLORIDE. [Suspect]
     Active Substance: METHYLPHENIDATE HYDROCHLORIDE
     Indication: PRODUCT USED FOR UNKNOWN INDICATION
     Route: 065
  24. FLUOXETINE [Suspect]
     Active Substance: FLUOXETINE HYDROCHLORIDE
     Indication: PRODUCT USED FOR UNKNOWN INDICATION
     Route: 065
  25. PROMAZINE [Suspect]
     Active Substance: PROMAZINE
     Indication: PRODUCT USED FOR UNKNOWN INDICATION
     Route: 065
  26. RISPERIDONE. [Suspect]
     Active Substance: RISPERIDONE
     Indication: DISTURBANCE IN SOCIAL BEHAVIOUR
     Dosage: 0.23 TO 4.5 MG DAILY.
     Route: 048
  27. HYDROXYZINE [Suspect]
     Active Substance: HYDROXYZINE HYDROCHLORIDE
     Indication: PRODUCT USED FOR UNKNOWN INDICATION
     Route: 065
  28. CARBAMAZEPINE. [Suspect]
     Active Substance: CARBAMAZEPINE
     Indication: PRODUCT USED FOR UNKNOWN INDICATION
     Route: 065

REACTIONS (15)
  - Gynaecomastia [Unknown]
  - Myalgia [Unknown]
  - Psychiatric symptom [Unknown]
  - Sedation complication [Unknown]
  - Weight increased [Unknown]
  - Increased appetite [Unknown]
  - Electrocardiogram QT prolonged [Unknown]
  - Amenorrhoea [Unknown]
  - Off label use [Unknown]
  - Treatment noncompliance [Unknown]
  - Product use in unapproved indication [Unknown]
  - Seizure [Unknown]
  - Hyperprolactinaemia [Unknown]
  - Liver function test increased [Unknown]
  - Extrapyramidal disorder [Unknown]
